FAERS Safety Report 7203712-X (Version None)
Quarter: 2010Q4

REPORT INFORMATION
  Report Type: 
  Country: None (occurrence: None)
  Receive Date: 20101230
  Receipt Date: 20101217
  Transmission Date: 20110411
  Serious: Yes (Hospitalization, Other)
  Sender: FDA-Public Use
  Company Number: PHHY2010JP75659

PATIENT
  Age: 63 Year
  Sex: Male

DRUGS (3)
  1. LOPRESSOR [Suspect]
     Indication: COMPUTERISED TOMOGRAM
     Route: 048
  2. IOPAMIDOL [Suspect]
     Dosage: 70 ML, DAILY
     Route: 042
     Dates: start: 20070312, end: 20070312
  3. NITROPEN [Concomitant]
     Dosage: 1 DF, UNK
     Route: 060
     Dates: start: 20070312, end: 20070312

REACTIONS (1)
  - ANAPHYLACTIC SHOCK [None]
